FAERS Safety Report 9303464 (Version 1)
Quarter: 2013Q2

REPORT INFORMATION
  Report Type: Spontaneous
  Country: FR (occurrence: FR)
  Receive Date: 20130522
  Receipt Date: 20130522
  Transmission Date: 20140414
  Serious: Yes (Hospitalization)
  Sender: FDA-Public Use
  Company Number: FR-TEVA-405804ISR

PATIENT
  Sex: Female

DRUGS (1)
  1. LEELOO [Suspect]
     Dates: start: 2013

REACTIONS (1)
  - Phlebitis [Unknown]
